FAERS Safety Report 8638739 (Version 2)
Quarter: 2013Q3

REPORT INFORMATION
  Report Type: Report from Study
  Country: US (occurrence: US)
  Receive Date: 20120627
  Receipt Date: 20130726
  Transmission Date: 20140515
  Serious: Yes (Death, Hospitalization, Other)
  Sender: FDA-Public Use
  Company Number: US-BRISTOL-MYERS SQUIBB COMPANY-14637151

PATIENT
  Age: 66 Year
  Sex: Female

DRUGS (9)
  1. IPILIMUMAB [Suspect]
     Indication: MALIGNANT MELANOMA
     Route: 042
     Dates: start: 20080620, end: 20090529
  2. HYDROCORTISONE [Concomitant]
     Route: 048
     Dates: start: 20090520
  3. LEVOTHYROXINE [Concomitant]
     Route: 048
     Dates: start: 20090520
  4. MICRO-K [Concomitant]
     Route: 048
     Dates: start: 20090520
  5. PROTONIX [Concomitant]
     Route: 048
     Dates: start: 20090520
  6. TYLENOL #3 [Concomitant]
     Dosage: 1DF=300MG/30MG
     Dates: start: 20090520
  7. CODEINE [Concomitant]
     Dosage: 1DF=300MG/30MG
  8. VIGAMOX [Concomitant]
  9. PRED FORTE [Concomitant]

REACTIONS (2)
  - Malignant neoplasm progression [Fatal]
  - Keratitis [Recovered/Resolved]
